FAERS Safety Report 24062921 (Version 1)
Quarter: 2024Q3

REPORT INFORMATION
  Report Type: Spontaneous
  Country: BR (occurrence: BR)
  Receive Date: 20240709
  Receipt Date: 20240709
  Transmission Date: 20241016
  Serious: Yes (Other)
  Sender: NOVO NORDISK
  Company Number: BR-NOVOPROD-1248531

PATIENT
  Age: 51 Year
  Sex: Male
  Weight: 85 kg

DRUGS (9)
  1. INSULIN HUMAN [Suspect]
     Active Substance: INSULIN HUMAN
     Indication: Product used for unknown indication
     Dosage: UNK
     Dates: start: 2002
  2. HUMALOG [Concomitant]
     Active Substance: INSULIN LISPRO
     Dosage: 4 IU, TID(4 IU AT THE 3 MAIN MEALS)
     Route: 058
  3. LINAGLIPTIN [Concomitant]
     Active Substance: LINAGLIPTIN
     Indication: Product used for unknown indication
     Dosage: 5 MG, QD
     Route: 048
  4. OLMESARTAN [Concomitant]
     Active Substance: OLMESARTAN
     Dosage: 40 MG, QD
     Route: 048
  5. AMLODIPINE [Concomitant]
     Active Substance: AMLODIPINE BESYLATE
     Dosage: 10 MG, QD
     Route: 048
  6. FOLIC ACID [Concomitant]
     Active Substance: FOLIC ACID
     Dosage: 5 MG, QD
     Route: 048
  7. BIVOLET [Concomitant]
     Dosage: 5 MG, QD
     Route: 048
  8. VITAMIN B COMPLEX [Concomitant]
     Active Substance: CYANOCOBALAMIN\DEXPANTHENOL\NIACINAMIDE\PYRIDOXINE HYDROCHLORIDE\RIBOFLAVIN 5^-PHOSPHATE SODIUM\THIA
     Dosage: QD,1 TABLET ORALLY AFTER LUNCH
     Route: 048
  9. CALCITRIOL [Concomitant]
     Active Substance: CALCITRIOL
     Dosage: 0.25 ?G, QOD
     Route: 048

REACTIONS (1)
  - Chronic kidney disease [Unknown]
